FAERS Safety Report 7891231-7 (Version None)
Quarter: 2011Q4

REPORT INFORMATION
  Report Type: 
  Country: None (occurrence: None)
  Receive Date: 20111103
  Receipt Date: 20110801
  Transmission Date: 20120403
  Serious: No
  Sender: FDA-Public Use
  Company Number: US-AMGEN-USASP2011038870

PATIENT
  Sex: Male

DRUGS (1)
  1. ENBREL [Suspect]
     Indication: PSORIASIS
     Dosage: 50 MG, Q2MO
     Dates: start: 20110501

REACTIONS (4)
  - BLOOD DISORDER [None]
  - PSORIASIS [None]
  - FATIGUE [None]
  - BLOOD GLUCOSE INCREASED [None]
